FAERS Safety Report 19275029 (Version 2)
Quarter: 2021Q2

REPORT INFORMATION
  Report Type: Spontaneous
  Country: US (occurrence: US)
  Receive Date: 20210519
  Receipt Date: 20210616
  Transmission Date: 20210717
  Serious: No
  Sender: FDA-Public Use
  Company Number: US-BAYER-2021-143212

PATIENT
  Age: 3 Year
  Sex: Male

DRUGS (4)
  1. KOGENATE FS [Suspect]
     Active Substance: ANTIHEMOPHILIC FACTOR, HUMAN RECOMBINANT
     Dosage: 1 DF, ONCE (BLEEDING PROPHYLAXIS)
     Route: 042
     Dates: start: 20210515, end: 20210515
  2. KOGENATE FS [Suspect]
     Active Substance: ANTIHEMOPHILIC FACTOR, HUMAN RECOMBINANT
     Dosage: GIVEN A MAJOR BLEED DOSE FOR HEAD INJURY EVEN THOUGH THERE WERE NO SIGNS OF A BLEED
     Route: 042
     Dates: start: 20210613, end: 20210613
  3. KOGENATE FS [Suspect]
     Active Substance: ANTIHEMOPHILIC FACTOR, HUMAN RECOMBINANT
     Dosage: 800 U, UNK
     Route: 042
  4. KOGENATE FS [Suspect]
     Active Substance: ANTIHEMOPHILIC FACTOR, HUMAN RECOMBINANT
     Dosage: 1 DF, ONCE (BLEEDING PROPHYLAXIS)
     Route: 042
     Dates: start: 20210516, end: 20210516

REACTIONS (4)
  - Head injury [Recovered/Resolved]
  - Mass [Recovered/Resolved]
  - Fall [Recovered/Resolved]
  - Head injury [Recovered/Resolved]

NARRATIVE: CASE EVENT DATE: 20210515
